FAERS Safety Report 20661352 (Version 1)
Quarter: 2022Q2

REPORT INFORMATION
  Report Type: Spontaneous
  Country: CZ (occurrence: CZ)
  Receive Date: 20220401
  Receipt Date: 20220401
  Transmission Date: 20220720
  Serious: Yes (Other)
  Sender: FDA-Public Use
  Company Number: CZ-SUN PHARMACEUTICAL INDUSTRIES LTD-2022R1-331122

PATIENT
  Age: 68 Year
  Sex: Female

DRUGS (3)
  1. ALLOPURINOL [Interacting]
     Active Substance: ALLOPURINOL
     Indication: Hypertension
     Dosage: UNK
     Route: 065
  2. ALLOPURINOL [Interacting]
     Active Substance: ALLOPURINOL
     Indication: Hyperuricaemia
  3. AZATHIOPRINE [Interacting]
     Active Substance: AZATHIOPRINE
     Indication: Lung disorder
     Dosage: UNK
     Route: 065
     Dates: start: 200909

REACTIONS (3)
  - Pancytopenia [Recovering/Resolving]
  - Myelosuppression [Unknown]
  - Drug interaction [Unknown]
